FAERS Safety Report 25906967 (Version 1)
Quarter: 2025Q4

REPORT INFORMATION
  Report Type: Spontaneous
  Country: GB (occurrence: GB)
  Receive Date: 20251010
  Receipt Date: 20251010
  Transmission Date: 20260117
  Serious: Yes (Hospitalization, Other)
  Sender: ELI LILLY AND COMPANY
  Company Number: None

PATIENT
  Age: 51 Year
  Sex: Female

DRUGS (7)
  1. MOUNJARO [Suspect]
     Active Substance: TIRZEPATIDE
     Indication: Product used for unknown indication
     Dosage: 5 MG, WEEKLY (1/W)
     Route: 065
     Dates: end: 20250918
  2. MOUNJARO [Suspect]
     Active Substance: TIRZEPATIDE
     Indication: Product used for unknown indication
     Dosage: 5 MG, WEEKLY (1/W)
     Route: 065
     Dates: end: 20250918
  3. LEVOTHYROXINE [Concomitant]
     Active Substance: LEVOTHYROXINE
     Indication: Product used for unknown indication
     Dosage: UNK
  4. NOVORAPID [Concomitant]
     Active Substance: INSULIN ASPART
     Indication: Product used for unknown indication
     Dosage: UNK
  5. TRESIBA [Concomitant]
     Active Substance: INSULIN DEGLUDEC
     Indication: Product used for unknown indication
     Dosage: UNK
  6. ESTRADIOL\NORETHINDRONE ACETATE [Concomitant]
     Active Substance: ESTRADIOL\NORETHINDRONE ACETATE
     Indication: Product used for unknown indication
     Dosage: UNK
  7. DESOGESTREL [Concomitant]
     Active Substance: DESOGESTREL
     Indication: Product used for unknown indication
     Dosage: UNK

REACTIONS (3)
  - Diabetic ketoacidosis [Recovering/Resolving]
  - Feeding disorder [Unknown]
  - Intentional product misuse [Unknown]

NARRATIVE: CASE EVENT DATE: 20250918
